FAERS Safety Report 11280030 (Version 2)
Quarter: 2015Q4

REPORT INFORMATION
  Report Type: Spontaneous
  Country: US (occurrence: US)
  Receive Date: 20150717
  Receipt Date: 20151016
  Transmission Date: 20160304
  Serious: No
  Sender: FDA-Public Use
  Company Number: US-GALDERMA-US15002689

PATIENT
  Age: 67 Year
  Sex: Female

DRUGS (14)
  1. NEUTROGENA MOISTURIZER WITH SUNSCREEN [Concomitant]
     Indication: PROPHYLAXIS AGAINST SOLAR RADIATION
  2. DOXYCYCLINE. [Concomitant]
     Active Substance: DOXYCYCLINE
     Indication: RASH
     Dosage: 40 MG
     Route: 048
     Dates: start: 20150430
  3. CETAPHIL [Concomitant]
     Active Substance: AVOBENZONE\OCTOCRYLENE\TRICLOSAN
     Indication: THERAPEUTIC SKIN CARE TOPICAL
     Route: 061
  4. METRONIDAZOLE 0.75 % LOTION [Concomitant]
     Indication: ROSACEA
     Dosage: 0.75%
     Route: 061
     Dates: start: 1995
  5. EUCERIN Q10 DAILY PROTECT SPF 15 LOTION [Concomitant]
     Indication: DRY SKIN PROPHYLAXIS
     Route: 061
  6. COTZ PLUS SPF 58 BROAD SPECTRUM [Concomitant]
     Indication: PROPHYLAXIS AGAINST SOLAR RADIATION
     Route: 061
     Dates: end: 20150621
  7. SOOLANTRA [Suspect]
     Active Substance: IVERMECTIN
     Dosage: 1%
     Route: 061
     Dates: start: 20150519
  8. SOOLANTRA [Suspect]
     Active Substance: IVERMECTIN
     Indication: ROSACEA
     Dosage: 1%
     Route: 061
     Dates: start: 20150506, end: 20150509
  9. BENZOYL PEROXIDE PRODUCT [Concomitant]
     Route: 061
     Dates: start: 201504
  10. VIVELLE-DOT [Concomitant]
     Active Substance: ESTRADIOL
     Dosage: 0.025 MG
     Route: 062
  11. EUCERIN Q10 SENSITIVE SKIN CREAM [Concomitant]
     Indication: DRY SKIN PROPHYLAXIS
     Route: 061
     Dates: end: 20150518
  12. LEVOTHYROXIN [Concomitant]
     Active Substance: LEVOTHYROXINE
     Dosage: 0.1 MCG
     Route: 048
  13. EUCERIN Q10 DAILY PROTECT SPF 15 LOTION [Concomitant]
     Indication: PROPHYLAXIS AGAINST SOLAR RADIATION
  14. NEUTROGENA MOISTURIZER WITH SUNSCREEN [Concomitant]
     Indication: DRY SKIN PROPHYLAXIS
     Route: 061

REACTIONS (6)
  - Dermatitis [Recovered/Resolved]
  - Dry skin [Recovered/Resolved]
  - Rash papular [Recovered/Resolved]
  - Skin tightness [Recovered/Resolved]
  - Erythema [Recovered/Resolved]
  - Skin irritation [Recovered/Resolved]

NARRATIVE: CASE EVENT DATE: 20150509
